FAERS Safety Report 8978381 (Version 3)
Quarter: 2013Q4

REPORT INFORMATION
  Report Type: Spontaneous
  Country: US (occurrence: US)
  Receive Date: 20121221
  Receipt Date: 20131003
  Transmission Date: 20140711
  Serious: Yes (Hospitalization, Other)
  Sender: FDA-Public Use
  Company Number: US-009507513-1212USA007830

PATIENT
  Sex: Female
  Weight: 58.5 kg

DRUGS (4)
  1. FOSAMAX [Suspect]
     Indication: OSTEOPENIA
     Dosage: 70 MG, UNK
     Route: 048
     Dates: start: 200010, end: 200910
  2. FOSAMAX [Suspect]
     Indication: OSTEOPOROSIS
  3. FOSAMAX PLUS D [Suspect]
     Indication: OSTEOPENIA
     Dosage: 70 MG/5600, UNK
     Route: 048
     Dates: start: 200010, end: 200910
  4. FOSAMAX PLUS D [Suspect]
     Indication: OSTEOPOROSIS

REACTIONS (43)
  - Femur fracture [Recovered/Resolved]
  - Open reduction of fracture [Unknown]
  - Intramedullary rod insertion [Unknown]
  - Myocardial infarction [Unknown]
  - Rotator cuff repair [Unknown]
  - Femur fracture [Unknown]
  - Road traffic accident [Unknown]
  - Multiple fractures [Unknown]
  - Peptic ulcer [Unknown]
  - Diverticulitis [Unknown]
  - Hypertension [Not Recovered/Not Resolved]
  - Hypercholesterolaemia [Unknown]
  - Colon operation [Unknown]
  - Anorectal disorder [Unknown]
  - Adverse event [Unknown]
  - Fall [Unknown]
  - Rib fracture [Unknown]
  - Arthropathy [Unknown]
  - Arthropathy [Unknown]
  - Rib fracture [Unknown]
  - Ligament sprain [Unknown]
  - Laceration [Unknown]
  - Pelvic fracture [Unknown]
  - Coronary artery disease [Unknown]
  - Fall [Unknown]
  - Coronary arterial stent insertion [Unknown]
  - Pneumothorax traumatic [Unknown]
  - Polymyalgia rheumatica [Unknown]
  - Sciatica [Unknown]
  - Sinus bradycardia [Unknown]
  - Lower limb fracture [Unknown]
  - Fallopian tube operation [Unknown]
  - Meniscus injury [Unknown]
  - Medial tibial stress syndrome [Unknown]
  - Joint effusion [Unknown]
  - Intervertebral disc degeneration [Unknown]
  - Lumbar spinal stenosis [Unknown]
  - Scoliosis [Unknown]
  - Muscle spasms [Unknown]
  - Muscle spasms [Unknown]
  - Urticaria [Unknown]
  - Back pain [Unknown]
  - Gastrooesophageal reflux disease [Unknown]
